FAERS Safety Report 13621857 (Version 1)
Quarter: 2017Q2

REPORT INFORMATION
  Report Type: Spontaneous
  Country: US (occurrence: US)
  Receive Date: 20170607
  Receipt Date: 20170607
  Transmission Date: 20170830
  Serious: No
  Sender: FDA-Public Use
  Company Number: US-ROCHE-1864527

PATIENT
  Sex: Female
  Weight: 88.53 kg

DRUGS (1)
  1. XELODA [Suspect]
     Active Substance: CAPECITABINE
     Indication: BREAST CANCER
     Dosage: 14 DAYS ON THEN 7 DAYS OFF
     Route: 048

REACTIONS (2)
  - Oedema peripheral [Unknown]
  - Sciatica [Unknown]
